FAERS Safety Report 9742629 (Version 1)
Quarter: 2013Q4

REPORT INFORMATION
  Report Type: Spontaneous
  Country: US (occurrence: US)
  Receive Date: 20131210
  Receipt Date: 20131210
  Transmission Date: 20140711
  Serious: No
  Sender: FDA-Public Use
  Company Number: US-GILEAD-2009-0024838

PATIENT
  Sex: Female
  Weight: 90.7 kg

DRUGS (10)
  1. LETAIRIS [Suspect]
     Indication: PULMONARY ARTERIAL HYPERTENSION
     Route: 048
     Dates: start: 20090925
  2. AMARYL [Concomitant]
  3. TYLENOL [Concomitant]
  4. SERTRALINE HCL [Concomitant]
  5. REVATIO [Concomitant]
  6. CLARITIN [Concomitant]
  7. GLUCOPHAGE XR [Concomitant]
  8. ATACAND [Concomitant]
  9. VYTORIN [Concomitant]
  10. OMEGA 3 [Concomitant]

REACTIONS (3)
  - Dyspnoea [Unknown]
  - Local swelling [Unknown]
  - Headache [Unknown]
